FAERS Safety Report 5838711-3 (Version None)
Quarter: 2008Q3

REPORT INFORMATION
  Report Type: 
  Country: None (occurrence: None)
  Receive Date: 20080808
  Receipt Date: 20080801
  Transmission Date: 20090109
  Serious: Yes (Hospitalization)
  Sender: FDA-Public Use
  Company Number: B0530828A

PATIENT
  Age: 63 Year
  Sex: Male

DRUGS (2)
  1. VALTREX [Suspect]
     Indication: HERPES ZOSTER
     Dosage: 1000MG THREE TIMES PER DAY
     Route: 048
     Dates: start: 20080716, end: 20080718
  2. LOXONIN [Suspect]
     Indication: NEURALGIA
     Dosage: 60MG THREE TIMES PER DAY
     Route: 048
     Dates: start: 20080716, end: 20080719

REACTIONS (10)
  - BLOOD CREATININE INCREASED [None]
  - BLOOD UREA INCREASED [None]
  - CREATININE RENAL CLEARANCE DECREASED [None]
  - DYSARTHRIA [None]
  - ENCEPHALOPATHY [None]
  - FEELING ABNORMAL [None]
  - MENTAL IMPAIRMENT [None]
  - OEDEMA [None]
  - RENAL FAILURE ACUTE [None]
  - URINE OUTPUT DECREASED [None]
